FAERS Safety Report 21169485 (Version 4)
Quarter: 2022Q3

REPORT INFORMATION
  Report Type: Spontaneous
  Country: US (occurrence: US)
  Receive Date: 20220804
  Receipt Date: 20220913
  Transmission Date: 20221026
  Serious: No
  Sender: FDA-Public Use
  Company Number: US-JNJFOC-20220755295

PATIENT
  Sex: Female

DRUGS (2)
  1. TREMFYA [Suspect]
     Active Substance: GUSELKUMAB
     Indication: Guttate psoriasis
     Route: 065
     Dates: start: 20211008
  2. TREMFYA [Suspect]
     Active Substance: GUSELKUMAB

REACTIONS (4)
  - Hidradenitis [Not Recovered/Not Resolved]
  - Product use complaint [Unknown]
  - Skin irritation [Recovering/Resolving]
  - Off label use [Unknown]
